FAERS Safety Report 7950737-2 (Version None)
Quarter: 2011Q4

REPORT INFORMATION
  Report Type: 
  Country: None (occurrence: None)
  Receive Date: 20111123
  Receipt Date: 20111110
  Transmission Date: 20120403
  Serious: Yes (Death, Life-Threatening, Hospitalization, Other)
  Sender: FDA-Public Use
  Company Number: 2009AL003661

PATIENT
  Age: 69 Year
  Sex: Male

DRUGS (27)
  1. CIPROFLOXACIN [Concomitant]
  2. ZOCOR [Concomitant]
  3. POTASSIUM ACETATE [Concomitant]
  4. TOPROL-XL [Concomitant]
  5. LIPITOR [Concomitant]
  6. ATARAX [Concomitant]
  7. LOVENOX [Concomitant]
  8. ZOLOFT [Concomitant]
  9. POTASSIUM CHLORIDE [Concomitant]
  10. LASIX [Concomitant]
  11. LEVAQUIN [Concomitant]
  12. COUMADIN [Concomitant]
  13. MULTI-VITAMIN [Concomitant]
  14. SOLU-MEDROL [Concomitant]
  15. PREVACID [Concomitant]
  16. ATROVENT [Concomitant]
  17. ZITHROMAX [Concomitant]
  18. ASPIRIN [Concomitant]
  19. DIGOXIN [Suspect]
     Indication: ATRIAL FIBRILLATION
     Dosage: 0.25 MG; QD; PO
     Route: 048
     Dates: start: 19970730, end: 20071024
  20. LISINOPRIL [Concomitant]
  21. NORVASC [Concomitant]
  22. CARDIZEM [Concomitant]
  23. VENTOLIN [Concomitant]
  24. ZESTRIL [Concomitant]
  25. CAPTOPRIL [Concomitant]
  26. ROCEPHIN [Concomitant]
  27. TRIDIL [Concomitant]

REACTIONS (34)
  - CONTUSION [None]
  - TREATMENT NONCOMPLIANCE [None]
  - CORONARY ARTERY DISEASE [None]
  - INTERNATIONAL NORMALISED RATIO DECREASED [None]
  - ATRIAL FIBRILLATION [None]
  - THROMBOCYTOPENIA [None]
  - LARYNGITIS [None]
  - PULMONARY OEDEMA [None]
  - HYPERTENSION [None]
  - MYOCARDIAL INFARCTION [None]
  - HYPOXIA [None]
  - PNEUMONIA [None]
  - HAEMORRHAGE [None]
  - TYPE 2 DIABETES MELLITUS [None]
  - INGUINAL HERNIA [None]
  - DEPRESSION [None]
  - ADENOMA BENIGN [None]
  - MULTIPLE INJURIES [None]
  - EMOTIONAL DISORDER [None]
  - CARDIOVASCULAR DISORDER [None]
  - FALL [None]
  - CARDIAC FAILURE CONGESTIVE [None]
  - SEBORRHOEIC DERMATITIS [None]
  - BILIARY CYST [None]
  - ECONOMIC PROBLEM [None]
  - CARDIAC VALVE DISEASE [None]
  - HYPERLIPIDAEMIA [None]
  - BIPOLAR DISORDER [None]
  - PULMONARY CONGESTION [None]
  - BRONCHITIS CHRONIC [None]
  - GALLBLADDER DISORDER [None]
  - DIVERTICULUM [None]
  - HEPATIC STEATOSIS [None]
  - ISCHAEMIA [None]
